FAERS Safety Report 8431817-4 (Version None)
Quarter: 2012Q2

REPORT INFORMATION
  Report Type: 
  Country: None (occurrence: None)
  Receive Date: 20120606
  Receipt Date: 20120528
  Transmission Date: 20120825
  Serious: Yes (Hospitalization)
  Sender: FDA-Public Use
  Company Number: 1303089

PATIENT
  Age: 80 Year
  Sex: Male

DRUGS (2)
  1. WARFARIN SODIUM [Concomitant]
  2. AMIODARONE HYDROCHLORIDE [Suspect]
     Indication: ATRIAL FIBRILLATION
     Dosage: 200 MG MILLIGRAM (S)

REACTIONS (7)
  - ECCHYMOSIS [None]
  - INCISION SITE HAEMORRHAGE [None]
  - HAEMOPTYSIS [None]
  - COAGULOPATHY [None]
  - HAEMATURIA [None]
  - FACTOR V INHIBITION [None]
  - EPISTAXIS [None]
